FAERS Safety Report 11492863 (Version 1)
Quarter: 2015Q3

REPORT INFORMATION
  Report Type: Spontaneous
  Country: US (occurrence: None)
  Receive Date: 20150910
  Receipt Date: 20150910
  Transmission Date: 20151125
  Serious: No
  Sender: FDA-Public Use
  Company Number: None

PATIENT
  Age: 20 Year
  Sex: Female
  Weight: 56.7 kg

DRUGS (2)
  1. DASETTA 1/35 [Suspect]
     Active Substance: ETHINYL ESTRADIOL\NORETHINDRONE
     Indication: CONTRACEPTION
     Dosage: 1 PILL EVERYDAY ONCE DAILY TAKEN BY MOUTH
     Route: 048
     Dates: start: 20150821, end: 20150908
  2. VITAMIN E [Concomitant]
     Active Substance: .ALPHA.-TOCOPHEROL

REACTIONS (8)
  - Hunger [None]
  - Vaginal haemorrhage [None]
  - Dehydration [None]
  - Crying [None]
  - Dry mouth [None]
  - Initial insomnia [None]
  - Emotional disorder [None]
  - Thirst [None]
